FAERS Safety Report 6203481-6 (Version None)
Quarter: 2009Q2

REPORT INFORMATION
  Report Type: 
  Country: None (occurrence: None)
  Receive Date: 20090521
  Receipt Date: 20090511
  Transmission Date: 20091009
  Serious: Yes (Hospitalization)
  Sender: FDA-Public Use
  Company Number: 2009AP001892

PATIENT
  Age: 86 Year
  Sex: Female

DRUGS (2)
  1. LISINOPRIL [Suspect]
     Indication: HYPERTENSION
     Dosage: 20 MG; QD; PO
     Route: 048
  2. BACTRIM [Suspect]
     Indication: CELLULITIS
     Dosage: 1 DF; BID; PO
     Route: 048

REACTIONS (2)
  - HYPERKALAEMIA [None]
  - VENTRICULAR ARRHYTHMIA [None]
